FAERS Safety Report 11617489 (Version 1)
Quarter: 2015Q4

REPORT INFORMATION
  Report Type: Spontaneous
  Country: CA (occurrence: CA)
  Receive Date: 20151009
  Receipt Date: 20151009
  Transmission Date: 20160304
  Serious: Yes (Other)
  Sender: FDA-Public Use
  Company Number: CA-PURDUE PHARMA-CAN-2015-0006161

PATIENT
  Sex: Female

DRUGS (2)
  1. HYDROMORPH CONTIN 24 MG [Suspect]
     Active Substance: HYDROMORPHONE
     Indication: PRODUCT USED FOR UNKNOWN INDICATION
     Dosage: UNK
     Route: 042
  2. HYDROMORPH CONTIN 24 MG [Suspect]
     Active Substance: HYDROMORPHONE
     Indication: BACK PAIN
     Dosage: 24 MG, Q12H
     Route: 065

REACTIONS (2)
  - Drug abuse [Unknown]
  - Endocarditis [Recovering/Resolving]
